FAERS Safety Report 8842342 (Version 1)
Quarter: 2012Q4

REPORT INFORMATION
  Report Type: 
  Country: US (occurrence: US)
  Receive Date: 20121016
  Receipt Date: 20121016
  Transmission Date: 20130627
  Serious: Yes (Other)
  Sender: FDA-Public Use
  Company Number: US-ROCHE-1136388

PATIENT
  Sex: Male

DRUGS (3)
  1. NUTROPIN [Suspect]
     Indication: HYPOTHALAMO-PITUITARY DISORDER
     Route: 065
  2. DILANTIN [Concomitant]
     Indication: CONVULSION
  3. DEPAKOTE [Concomitant]

REACTIONS (1)
  - Brain oedema [Unknown]
